FAERS Safety Report 6436947-4 (Version None)
Quarter: 2009Q4

REPORT INFORMATION
  Report Type: 
  Country: None (occurrence: None)
  Receive Date: 20091111
  Receipt Date: 20091104
  Transmission Date: 20100525
  Serious: Yes (Other)
  Sender: FDA-Public Use
  Company Number: US-JNJCH-2009029114

PATIENT
  Age: 8 Year
  Sex: Female

DRUGS (2)
  1. ZYRTEC [Suspect]
     Indication: HYPERSENSITIVITY
     Dosage: TEXT:ONE TABLET ONCE
     Route: 048
     Dates: start: 20091023, end: 20091023
  2. DRUG, UNSPECIFIED [Concomitant]
     Indication: HYPERSENSITIVITY
     Dosage: TEXT:UNSPECIFIED
     Route: 065

REACTIONS (2)
  - DYSPNOEA [None]
  - RASH [None]
